FAERS Safety Report 9215049 (Version 2)
Quarter: 2013Q4

REPORT INFORMATION
  Report Type: Spontaneous
  Country: US (occurrence: US)
  Receive Date: 20130405
  Receipt Date: 20131105
  Transmission Date: 20140711
  Serious: Yes (Disabling, Other)
  Sender: FDA-Public Use
  Company Number: US-BAYER-2013-041208

PATIENT
  Age: 29 Year
  Sex: Female

DRUGS (6)
  1. YAZ [Suspect]
     Dosage: UNK
  2. YASMIN [Suspect]
     Dosage: UNK
  3. FISH OIL [Concomitant]
     Dosage: 435 MG, UNK
     Route: 048
  4. 5-HYDROXYTRYPTOPHAN [Concomitant]
     Dosage: 100 MG, UNK
     Route: 048
  5. MAGNESSIUM CARBONATE [Concomitant]
     Dosage: 500 MG, UNK
     Route: 048
  6. SPIRULINA [Concomitant]
     Dosage: 500 MG, UNK
     Route: 048

REACTIONS (5)
  - Gallbladder disorder [None]
  - Biliary dyskinesia [None]
  - Injury [None]
  - Pain [None]
  - Emotional distress [None]
